FAERS Safety Report 12079232 (Version 1)
Quarter: 2016Q1

REPORT INFORMATION
  Report Type: Spontaneous
  Country: GB (occurrence: GB)
  Receive Date: 20160216
  Receipt Date: 20160216
  Transmission Date: 20160526
  Serious: Yes (Death, Other)
  Sender: FDA-Public Use
  Company Number: GB-ROXANE LABORATORIES, INC.-2016-RO-00251RO

PATIENT
  Age: 5 Day
  Sex: Female

DRUGS (4)
  1. HEROIN [Suspect]
     Active Substance: DIACETYLMORPHINE
     Indication: FOETAL EXPOSURE DURING PREGNANCY
     Route: 063
  2. DOLOPHINE [Suspect]
     Active Substance: METHADONE HYDROCHLORIDE
     Indication: FOETAL EXPOSURE DURING PREGNANCY
     Route: 063
  3. HEROIN [Suspect]
     Active Substance: DIACETYLMORPHINE
     Indication: EXPOSURE DURING BREAST FEEDING
  4. DOLOPHINE [Suspect]
     Active Substance: METHADONE HYDROCHLORIDE
     Indication: EXPOSURE DURING BREAST FEEDING

REACTIONS (2)
  - Sudden infant death syndrome [Fatal]
  - Drug withdrawal syndrome neonatal [Unknown]
